FAERS Safety Report 5774111-2 (Version None)
Quarter: 2008Q2

REPORT INFORMATION
  Report Type: 
  Country: None (occurrence: None)
  Receive Date: 20080616
  Receipt Date: 20080606
  Transmission Date: 20081010
  Serious: Yes (Hospitalization)
  Sender: FDA-Public Use
  Company Number: JP-MERCK-0805USA00332

PATIENT
  Age: 82 Year
  Sex: Male
  Weight: 51 kg

DRUGS (6)
  1. COZAAR [Suspect]
     Indication: HYPERTENSION
     Route: 048
     Dates: start: 20070326
  2. COZAAR [Suspect]
     Route: 048
     Dates: start: 20030206, end: 20070325
  3. ADALAT [Concomitant]
     Indication: HYPERTENSION
     Route: 048
  4. WARFARIN POTASSIUM [Concomitant]
     Indication: CEREBRAL INFARCTION
     Route: 048
     Dates: start: 20080430
  5. WARFARIN POTASSIUM [Concomitant]
     Route: 048
  6. NORMONAL [Concomitant]
     Indication: HYPERTENSION
     Route: 048
     Dates: start: 20040618, end: 20080430

REACTIONS (3)
  - BLOOD CREATINE PHOSPHOKINASE INCREASED [None]
  - BLOOD CREATININE INCREASED [None]
  - BLOOD URIC ACID INCREASED [None]
